FAERS Safety Report 22191800 (Version 1)
Quarter: 2023Q2

REPORT INFORMATION
  Report Type: Spontaneous
  Country: US (occurrence: None)
  Receive Date: 20230407
  Receipt Date: 20230407
  Transmission Date: 20230722
  Serious: Yes (Disabling)
  Sender: FDA-Public Use
  Company Number: None

PATIENT
  Age: 58 Year
  Sex: Female
  Weight: 85.5 kg

DRUGS (8)
  1. NYSTATIN [Suspect]
     Active Substance: NYSTATIN
     Indication: Candida infection
     Dosage: ORAL
     Route: 048
     Dates: start: 20211214, end: 20211223
  2. MORPHINE [Concomitant]
     Active Substance: MORPHINE
  3. GABAPENTIN [Concomitant]
     Active Substance: GABAPENTIN
  4. METFORMIN [Concomitant]
     Active Substance: METFORMIN HYDROCHLORIDE
  5. FEXOFENADINE [Concomitant]
     Active Substance: FEXOFENADINE HYDROCHLORIDE
  6. SINGULAIR [Concomitant]
     Active Substance: MONTELUKAST SODIUM
  7. ADVAIR HFA [Concomitant]
     Active Substance: FLUTICASONE PROPIONATE\SALMETEROL XINAFOATE
  8. GUMMY MULTI VITAMINS [Concomitant]

REACTIONS (3)
  - Migraine [None]
  - Visual impairment [None]
  - Cerebrovascular accident [None]

NARRATIVE: CASE EVENT DATE: 20211214
